FAERS Safety Report 11407875 (Version 1)
Quarter: 2015Q3

REPORT INFORMATION
  Report Type: Spontaneous
  Country: US (occurrence: US)
  Receive Date: 20150821
  Receipt Date: 20150821
  Transmission Date: 20151125
  Serious: No
  Sender: FDA-Public Use
  Company Number: US-NOVOPROD-448413

PATIENT
  Age: 65 Year
  Sex: Female

DRUGS (3)
  1. VICTOZA [Suspect]
     Active Substance: LIRAGLUTIDE
     Indication: TYPE 2 DIABETES MELLITUS
     Dosage: 0.6 MG QD
     Route: 058
     Dates: start: 20150416
  2. VICTOZA [Suspect]
     Active Substance: LIRAGLUTIDE
     Dosage: 1.2 MG QD
     Route: 058
  3. VICTOZA [Suspect]
     Active Substance: LIRAGLUTIDE
     Dosage: 0.6 MG QD
     Route: 058

REACTIONS (6)
  - Dizziness [Recovered/Resolved]
  - Eructation [Not Recovered/Not Resolved]
  - Headache [Not Recovered/Not Resolved]
  - Abdominal pain [Unknown]
  - Nausea [Not Recovered/Not Resolved]
  - Blood glucose decreased [Unknown]

NARRATIVE: CASE EVENT DATE: 201504
